FAERS Safety Report 12600232 (Version 1)
Quarter: 2016Q3

REPORT INFORMATION
  Report Type: Spontaneous
  Country: ES (occurrence: ES)
  Receive Date: 20160727
  Receipt Date: 20160727
  Transmission Date: 20161109
  Serious: Yes (Hospitalization, Other)
  Sender: FDA-Public Use
  Company Number: ES-GLAXOSMITHKLINE-ES2016GSK106127

PATIENT
  Age: 48 Year
  Sex: Female

DRUGS (2)
  1. FLUTICASONE [Suspect]
     Active Substance: FLUTICASONE\FLUTICASONE PROPIONATE
     Indication: ASTHMA
     Route: 055
  2. RITONAVIR. [Suspect]
     Active Substance: RITONAVIR
     Indication: HIV INFECTION

REACTIONS (9)
  - Upper gastrointestinal haemorrhage [Unknown]
  - Muscular weakness [Unknown]
  - Asthenia [Unknown]
  - Adrenal insufficiency [Unknown]
  - Hypotension [Unknown]
  - Blood cortisol decreased [Unknown]
  - Gastritis erosive [Unknown]
  - Hypoglycaemia [Unknown]
  - Cushing^s syndrome [Unknown]
